FAERS Safety Report 8775796 (Version 3)
Quarter: 2014Q2

REPORT INFORMATION
  Report Type: Spontaneous
  Country: IN (occurrence: IN)
  Receive Date: 20120910
  Receipt Date: 20131017
  Transmission Date: 20141212
  Serious: Yes (Other)
  Sender: FDA-Public Use
  Company Number: IN-PFIZER INC-2012221166

PATIENT
  Age: 14 Year
  Sex: Female

DRUGS (3)
  1. PHENYTOIN [Suspect]
     Indication: EPILEPSY
     Dosage: 100 MG, 2X/DAY
  2. VALPROATE [Concomitant]
     Dosage: UNK
  3. CARBAMAZEPINE [Concomitant]
     Dosage: UNK

REACTIONS (4)
  - Dental pulp disorder [Recovering/Resolving]
  - Tooth development disorder [Recovering/Resolving]
  - Tooth disorder [Recovering/Resolving]
  - Hypocalcaemia [Recovering/Resolving]
